FAERS Safety Report 4288121-8 (Version None)
Quarter: 2004Q1

REPORT INFORMATION
  Report Type: 
  Country: None (occurrence: None)
  Receive Date: 20040209
  Receipt Date: 20030821
  Transmission Date: 20041129
  Serious: No
  Sender: FDA-Public Use
  Company Number: US-GLAXOSMITHKLINE-A0422881A

PATIENT
  Sex: Male

DRUGS (1)
  1. PAXIL [Suspect]
     Dosage: 40MG UNKNOWN
     Route: 048

REACTIONS (1)
  - EJACULATION FAILURE [None]
